FAERS Safety Report 11919888 (Version 1)
Quarter: 2016Q1

REPORT INFORMATION
  Report Type: Spontaneous
  Country: US (occurrence: None)
  Receive Date: 20160114
  Receipt Date: 20160114
  Transmission Date: 20160526
  Serious: Yes (Hospitalization)
  Sender: FDA-Public Use
  Company Number: None

PATIENT
  Age: 48 Year
  Sex: Female
  Weight: 90.27 kg

DRUGS (1)
  1. HUMIRA [Suspect]
     Active Substance: ADALIMUMAB
     Indication: PSORIASIS
     Dosage: ONE MONTH AGO; ONLY INITIAL 2 INJ

REACTIONS (7)
  - Back pain [None]
  - Fibromyalgia [None]
  - Dyspnoea [None]
  - Ulcer [None]
  - Burning sensation [None]
  - Arthralgia [None]
  - Urinary tract infection [None]
